FAERS Safety Report 10043955 (Version 1)
Quarter: 2014Q1

REPORT INFORMATION
  Report Type: Spontaneous
  Country: US (occurrence: US)
  Receive Date: 20140328
  Receipt Date: 20140328
  Transmission Date: 20141002
  Serious: No
  Sender: FDA-Public Use
  Company Number: -MYLANLABS-2013S1011737

PATIENT
  Age: 40 Year
  Sex: Male

DRUGS (5)
  1. EMSAM (SELEGILINE TRANSDERMAL SYSTEM) [Suspect]
     Indication: MAJOR DEPRESSION
     Dosage: CHANGES Q DAY.
     Route: 062
     Dates: start: 20130523, end: 20130527
  2. FLONASE [Concomitant]
  3. ASMANEX [Concomitant]
  4. ATIVAN [Concomitant]
  5. INDERAL [Concomitant]

REACTIONS (4)
  - Hypertension [Recovered/Resolved]
  - Palpitations [Recovered/Resolved]
  - Visual impairment [Recovered/Resolved]
  - Flushing [Recovered/Resolved]
